FAERS Safety Report 6091345-0 (Version None)
Quarter: 2009Q1

REPORT INFORMATION
  Report Type: 
  Country: None (occurrence: None)
  Receive Date: 20090225
  Receipt Date: 20090218
  Transmission Date: 20090719
  Serious: Yes (Hospitalization)
  Sender: FDA-Public Use
  Company Number: IT-BAYER-200831757GPV

PATIENT
  Age: 53 Year
  Sex: Male
  Weight: 64 kg

DRUGS (5)
  1. SORAFENIB [Suspect]
     Indication: SARCOMA
     Dosage: TOTAL DAILY DOSE: 800 MG
     Route: 048
     Dates: start: 20080401, end: 20081121
  2. OMEPRAZOLE [Concomitant]
     Indication: PROPHYLAXIS
     Route: 048
     Dates: start: 20080401
  3. DOMPERIDONE [Concomitant]
     Indication: NAUSEA
     Route: 048
     Dates: start: 20080401
  4. DOMPERIDONE [Concomitant]
  5. TRAMADOL HCL [Concomitant]
     Indication: PAIN
     Route: 048
     Dates: start: 20080401

REACTIONS (1)
  - PULMONARY EMBOLISM [None]
